FAERS Safety Report 5306595-8 (Version None)
Quarter: 2007Q2

REPORT INFORMATION
  Report Type: 
  Country: None (occurrence: None)
  Receive Date: 20070424
  Receipt Date: 20070412
  Transmission Date: 20071010
  Serious: Yes (Hospitalization, Other)
  Sender: FDA-Public Use
  Company Number: SE-PFIZER INC-2005131180

PATIENT
  Sex: Female

DRUGS (5)
  1. GENOTROPIN [Suspect]
     Indication: HYPOPITUITARISM
     Route: 058
  2. LEVAXIN [Concomitant]
     Route: 048
  3. NIFEREX [Concomitant]
     Route: 048
  4. FOLLISTREL [Concomitant]
     Route: 048
  5. CODEINE PHOSPHATE AND ACETAMINOPHEN [Concomitant]

REACTIONS (2)
  - CONDITION AGGRAVATED [None]
  - MENINGIOMA [None]
